FAERS Safety Report 17057186 (Version 1)
Quarter: 2019Q4

REPORT INFORMATION
  Report Type: Spontaneous
  Country: ES (occurrence: ES)
  Receive Date: 20191121
  Receipt Date: 20191121
  Transmission Date: 20200122
  Serious: Yes (Other)
  Sender: FDA-Public Use
  Company Number: ES-SUN PHARMACEUTICAL INDUSTRIES LTD-2019RR-228347

PATIENT
  Age: 69 Year
  Sex: Female

DRUGS (2)
  1. CIPROFLOXACIN. [Suspect]
     Active Substance: CIPROFLOXACIN
     Indication: URINARY TRACT INFECTION
     Dosage: 500 MILLIGRAM, 1DOSE/12HOUR
     Route: 048
     Dates: start: 20190919, end: 20190925
  2. SIMVASTATINA (1023A) [Concomitant]
     Active Substance: SIMVASTATIN
     Indication: DYSLIPIDAEMIA
     Dosage: 20 MILLIGRAM, DAILY
     Route: 048
     Dates: start: 20180720

REACTIONS (1)
  - Anterograde amnesia [Recovered/Resolved]

NARRATIVE: CASE EVENT DATE: 20190920
